FAERS Safety Report 4829134-4 (Version None)
Quarter: 2005Q4

REPORT INFORMATION
  Report Type: 
  Country: None (occurrence: None)
  Receive Date: 20051027
  Receipt Date: 20050104
  Transmission Date: 20060501
  Serious: Yes (Hospitalization)
  Sender: FDA-Public Use
  Company Number: USA-2004-0015617

PATIENT
  Age: 61 Year
  Sex: Female

DRUGS (3)
  1. SPECTRACEF [Suspect]
     Indication: INFECTION
     Dosage: 250 MG, BID, UNKNOWN
     Route: 065
  2. CELEBREX [Concomitant]
  3. PREMARIN [Concomitant]

REACTIONS (2)
  - CLOSTRIDIAL INFECTION [None]
  - DIARRHOEA [None]
